FAERS Safety Report 10182705 (Version 1)
Quarter: 2014Q2

REPORT INFORMATION
  Report Type: Spontaneous
  Country: US (occurrence: None)
  Receive Date: 20140519
  Receipt Date: 20140519
  Transmission Date: 20141212
  Serious: Yes (Hospitalization)
  Sender: FDA-Public Use
  Company Number: None

PATIENT
  Age: 58 Year
  Sex: Female
  Weight: 74.84 kg

DRUGS (8)
  1. VARENICLINE [Suspect]
     Indication: SMOKING CESSATION THERAPY
     Dosage: 0.5MG QD DAYS 1-3 THEN BID DAYS 4-7, SEE ^DOSE OR AMOUNT^, ORAL
     Route: 048
     Dates: start: 20140221, end: 20140227
  2. VARENICLINE [Suspect]
     Indication: SMOKING CESSATION THERAPY
     Dosage: 1.0MG, BID DAYS 8-84, ORAL
     Route: 048
     Dates: start: 20140228
  3. METFORMIN, 500MG [Concomitant]
  4. LISINOPRIL, 20MG [Concomitant]
  5. LETROZOLE, 2.5MG [Concomitant]
  6. GLIPIZID, 10MG [Concomitant]
  7. PREDNISONE, 4X10MG [Concomitant]
  8. TRAMADOL, 20MG [Concomitant]

REACTIONS (4)
  - Abdominal pain [None]
  - Intestinal obstruction [None]
  - Intestinal stenosis [None]
  - Tobacco user [None]
